FAERS Safety Report 7164342-1 (Version None)
Quarter: 2010Q4

REPORT INFORMATION
  Report Type: 
  Country: None (occurrence: None)
  Receive Date: 20101201
  Receipt Date: 20101116
  Transmission Date: 20110411
  Serious: Yes (Death)
  Sender: FDA-Public Use
  Company Number: 1000017039

PATIENT
  Age: 92 Year
  Sex: Male

DRUGS (5)
  1. MEMANTINE [Suspect]
     Indication: DEMENTIA ALZHEIMER'S TYPE
     Dosage: 5 MG (5 MG, 1 IN 1 D), ORAL; 10 MG (10 MG, 1 IN 1 D), ORAL
     Route: 048
     Dates: start: 20100814, end: 20100829
  2. MEMANTINE [Suspect]
     Indication: DEMENTIA ALZHEIMER'S TYPE
     Dosage: 5 MG (5 MG, 1 IN 1 D), ORAL; 10 MG (10 MG, 1 IN 1 D), ORAL
     Route: 048
     Dates: start: 20100830, end: 20100914
  3. SODIUM VALPROATE (VALPROATE SODIUM) (VALPROATE SODIUM) [Concomitant]
  4. HALOPERIDOL (HALOPERIDOL) (HALOPERIDOL) [Concomitant]
  5. LORAZEPAM [Concomitant]

REACTIONS (4)
  - BRONCHOPNEUMONIA [None]
  - DEVICE MALFUNCTION [None]
  - INCORRECT DOSE ADMINISTERED [None]
  - UNDERDOSE [None]
